FAERS Safety Report 19056621 (Version 4)
Quarter: 2021Q2

REPORT INFORMATION
  Report Type: Spontaneous
  Country: BR (occurrence: BR)
  Receive Date: 20210325
  Receipt Date: 20210510
  Transmission Date: 20210717
  Serious: Yes (Other)
  Sender: FDA-Public Use
  Company Number: BR-PFIZER INC-2021257268

PATIENT
  Age: 71 Year
  Sex: Female
  Weight: 86 kg

DRUGS (4)
  1. XELJANZ [Suspect]
     Active Substance: TOFACITINIB CITRATE
     Indication: RHEUMATOID ARTHRITIS
     Dosage: 5 MG, 2X/DAY
     Dates: start: 20210126, end: 20210222
  2. DAFLON [DIOSMIN] [Concomitant]
     Active Substance: DIOSMIN
     Indication: CARDIOVASCULAR DISORDER
     Dosage: UNK
  3. XELJANZ [Suspect]
     Active Substance: TOFACITINIB CITRATE
     Dosage: 5 MG, 2X/DAY
     Dates: end: 20210312
  4. XELJANZ [Suspect]
     Active Substance: TOFACITINIB CITRATE
     Dosage: 5 MG, 1X/DAY
     Dates: start: 20210223, end: 20210305

REACTIONS (16)
  - Myocardial infarction [Unknown]
  - Cough [Recovering/Resolving]
  - Hypertension [Unknown]
  - Cardiac disorder [Unknown]
  - Musculoskeletal stiffness [Unknown]
  - Pulmonary congestion [Recovered/Resolved]
  - Dyspnoea [Recovered/Resolved]
  - Heart rate increased [Unknown]
  - Macule [Recovered/Resolved]
  - Fatigue [Unknown]
  - Malaise [Unknown]
  - Erythema [Unknown]
  - Intentional product misuse [Unknown]
  - Blood cholesterol abnormal [Unknown]
  - Cardiovascular disorder [Unknown]
  - Headache [Recovered/Resolved]

NARRATIVE: CASE EVENT DATE: 202102
